FAERS Safety Report 7055453-X (Version None)
Quarter: 2010Q4

REPORT INFORMATION
  Report Type: 
  Country: None (occurrence: None)
  Receive Date: 20101021
  Receipt Date: 20101015
  Transmission Date: 20110411
  Serious: Yes (Other)
  Sender: FDA-Public Use
  Company Number: US-RB-014317-10

PATIENT
  Age: 51 Year
  Sex: Female

DRUGS (3)
  1. MUCINEX DM [Suspect]
     Route: 048
     Dates: start: 20101001
  2. ALBUTEROL [Concomitant]
  3. PROVENTIL [Concomitant]

REACTIONS (3)
  - HEADACHE [None]
  - OVERDOSE [None]
  - PSYCHOMOTOR HYPERACTIVITY [None]
